FAERS Safety Report 7378565-X (Version None)
Quarter: 2011Q1

REPORT INFORMATION
  Report Type: 
  Country: None (occurrence: None)
  Receive Date: 20110328
  Receipt Date: 20110322
  Transmission Date: 20110831
  Serious: Yes (Other)
  Sender: FDA-Public Use
  Company Number: GB-PFIZER INC-2011063828

PATIENT
  Age: 46 Year
  Sex: Male

DRUGS (4)
  1. CETIRIZINE [Concomitant]
     Dosage: 10 MG, UNK
  2. SYMBICORT [Concomitant]
     Indication: ASTHMA
     Dosage: UNK
     Route: 055
  3. TRAMADOL [Concomitant]
     Dosage: 2 X 50MG, 4X/DAY
  4. BENEFIX [Suspect]
     Dosage: 2000 PROPHYLAXIS DOSE APPROXIMATELY 3 TIMES A WEEK

REACTIONS (3)
  - PAIN IN EXTREMITY [None]
  - CHEST PAIN [None]
  - DYSPNOEA [None]
